FAERS Safety Report 9017171 (Version 1)
Quarter: 2013Q1

REPORT INFORMATION
  Report Type: Spontaneous
  Country: US (occurrence: US)
  Receive Date: 20130117
  Receipt Date: 20130117
  Transmission Date: 20140127
  Serious: Yes (Hospitalization)
  Sender: FDA-Public Use
  Company Number: US-BAYER-2013-004530

PATIENT
  Age: 36 Year
  Sex: Female
  Weight: 68.94 kg

DRUGS (5)
  1. YASMIN [Suspect]
     Dosage: UNK
  2. YAZ [Suspect]
     Dosage: UNK
  3. LEXAPRO [Concomitant]
     Dosage: 20 MG, DAILY
     Route: 048
  4. QVAR [Concomitant]
     Dosage: UNK
  5. LASIX [Concomitant]
     Dosage: UNK

REACTIONS (2)
  - Pulmonary embolism [None]
  - Deep vein thrombosis [Recovered/Resolved]
